FAERS Safety Report 13886179 (Version 1)
Quarter: 2017Q3

REPORT INFORMATION
  Report Type: Spontaneous
  Country: KR (occurrence: KR)
  Receive Date: 20170821
  Receipt Date: 20170821
  Transmission Date: 20171127
  Serious: Yes (Other)
  Sender: FDA-Public Use
  Company Number: KR-PFIZER INC-3200264

PATIENT
  Age: 43 Year
  Sex: Female

DRUGS (6)
  1. CAPECITABINE. [Suspect]
     Active Substance: CAPECITABINE
     Indication: INVASIVE DUCTAL BREAST CARCINOMA
     Dosage: 2000 MG/M2, ON DAYS 1 THROUGH 14 OF A 21-DAY CYCLE, FREQ: CYCLICAL
     Dates: start: 20130101
  2. LAPATINIB [Suspect]
     Active Substance: LAPATINIB
     Indication: INVASIVE DUCTAL BREAST CARCINOMA
     Dosage: 1250 MG, DAILY, FREQ: CYCLICAL
     Dates: start: 20130101
  3. PACLITAXEL. [Suspect]
     Active Substance: PACLITAXEL
     Indication: INVASIVE DUCTAL BREAST CARCINOMA
     Dosage: WEEKLY, FREQ: CYCLICAL
  4. LEVOTHYROXINE. [Concomitant]
     Active Substance: LEVOTHYROXINE
     Indication: HORMONE REPLACEMENT THERAPY
     Dosage: 75 UG, DAILY
  5. PREDNISOLONE. [Concomitant]
     Active Substance: PREDNISOLONE
     Indication: HORMONE REPLACEMENT THERAPY
     Dosage: 7.5 MG, DAILY IN DIVIDED DOSES EVERY MORNING AND AFTERNOON
  6. DESMOPRESSIN ACETATE. [Concomitant]
     Active Substance: DESMOPRESSIN ACETATE
     Indication: HORMONE REPLACEMENT THERAPY
     Dosage: 50 UG, 2X/DAY

REACTIONS (6)
  - Intestinal sepsis [Unknown]
  - Amnesia [Not Recovered/Not Resolved]
  - Somnolence [Unknown]
  - Asthenia [Unknown]
  - Nausea [Unknown]
  - Electrolyte imbalance [Unknown]
